FAERS Safety Report 4396442-3 (Version None)
Quarter: 2004Q3

REPORT INFORMATION
  Report Type: 
  Country: None (occurrence: None)
  Receive Date: 20040709
  Receipt Date: 20040624
  Transmission Date: 20050211
  Serious: Yes (Hospitalization)
  Sender: FDA-Public Use
  Company Number: 800042

PATIENT
  Age: 58 Year
  Sex: Female
  Weight: 69.5 kg

DRUGS (15)
  1. DIANEAL PD-2 W/ DEXTROSE 2.5% IN PLASTIC CONTAINER [Suspect]
     Indication: PERITONEAL DIALYSIS
     Dosage: INTRAPERITONEAL
     Route: 033
     Dates: start: 20040612
  2. MIDODRINE HCL [Concomitant]
  3. REPAGLINIDE [Concomitant]
  4. SIMVISTATIN [Concomitant]
  5. SEVELAMER [Concomitant]
  6. STRESS FLEX [Concomitant]
  7. FOLIC ACID [Concomitant]
  8. ACUSATE [Concomitant]
  9. ROSIGLITASONE [Concomitant]
  10. ACARBOSE [Concomitant]
  11. COOL TEX LOTION [Concomitant]
  12. ALENDRONATE SODIUM [Concomitant]
  13. WARFARIN SODIUM [Concomitant]
  14. FERROUS SULFATE TAB [Concomitant]
  15. ANOXAPARIN [Concomitant]

REACTIONS (10)
  - ABDOMINAL PAIN [None]
  - ASCITES [None]
  - CATHETER RELATED INFECTION [None]
  - ERYTHEMA [None]
  - EXTRUSION OF DEVICE [None]
  - FUNGAL INFECTION [None]
  - HYPOTENSION [None]
  - MORGANELLA INFECTION [None]
  - PHARMACEUTICAL PRODUCT COMPLAINT [None]
  - SEPSIS [None]
